FAERS Safety Report 19959443 (Version 1)
Quarter: 2021Q4

REPORT INFORMATION
  Report Type: Spontaneous
  Country: US (occurrence: US)
  Receive Date: 20211012
  Receipt Date: 20211012
  Transmission Date: 20220304
  Serious: No
  Sender: FDA-Public Use
  Company Number: None

PATIENT
  Sex: Female

DRUGS (1)
  1. NUCALA [Suspect]
     Active Substance: MEPOLIZUMAB
     Indication: Polyarthritis
     Route: 058
     Dates: start: 202011

REACTIONS (4)
  - Rash [None]
  - Cough [None]
  - Allergy to chemicals [None]
  - Drug ineffective [None]
